FAERS Safety Report 13819498 (Version 2)
Quarter: 2018Q1

REPORT INFORMATION
  Report Type: Report from Study
  Country: US (occurrence: US)
  Receive Date: 20170731
  Receipt Date: 20180201
  Transmission Date: 20180508
  Serious: No
  Sender: FDA-Public Use
  Company Number: US-EXELIXIS-CABO-17009228

PATIENT
  Sex: Female

DRUGS (15)
  1. ASCORBIC [Concomitant]
  2. RESTASIS [Concomitant]
     Active Substance: CYCLOSPORINE
  3. TYLENOL [Concomitant]
     Active Substance: ACETAMINOPHEN
  4. CHELATED ZINC [Concomitant]
  5. LOPERAMIDE [Concomitant]
     Active Substance: LOPERAMIDE
  6. VITAMIN B6 [Concomitant]
     Active Substance: PYRIDOXINE HYDROCHLORIDE
  7. ATENOLOL. [Concomitant]
     Active Substance: ATENOLOL
  8. LEVOTHYROXINE. [Concomitant]
     Active Substance: LEVOTHYROXINE
  9. LASIX [Concomitant]
     Active Substance: FUROSEMIDE
  10. CABOMETYX [Suspect]
     Active Substance: CABOZANTINIB S-MALATE
     Indication: RENAL CANCER
     Dosage: 20 MG, QD
     Route: 048
     Dates: start: 20170126
  11. CABOMETYX [Suspect]
     Active Substance: CABOZANTINIB S-MALATE
     Indication: MALIGNANT NEOPLASM PROGRESSION
  12. LISINOPRIL. [Concomitant]
     Active Substance: LISINOPRIL
  13. XARELTO [Concomitant]
     Active Substance: RIVAROXABAN
  14. VITAMIN D3 [Concomitant]
     Active Substance: CHOLECALCIFEROL
  15. MAGNESIUM [Concomitant]
     Active Substance: MAGNESIUM

REACTIONS (1)
  - Adverse event [Unknown]
